FAERS Safety Report 6074613-8 (Version None)
Quarter: 2009Q1

REPORT INFORMATION
  Report Type: 
  Country: None (occurrence: None)
  Receive Date: 20090212
  Receipt Date: 20090202
  Transmission Date: 20090719
  Serious: Yes (Other)
  Sender: FDA-Public Use
  Company Number: US-ALLERGAN-0901257US

PATIENT
  Sex: Female

DRUGS (2)
  1. RESTASIS [Suspect]
     Indication: DRY EYE
     Route: 047
     Dates: start: 20081103
  2. LOTEMAX [Suspect]
     Indication: DRY EYE
     Dosage: UNK, UNK
     Route: 061
     Dates: start: 20081103

REACTIONS (1)
  - KERATITIS HERPETIC [None]
